FAERS Safety Report 18231051 (Version 2)
Quarter: 2020Q3

REPORT INFORMATION
  Report Type: Spontaneous
  Country: FR (occurrence: FR)
  Receive Date: 20200904
  Receipt Date: 20200915
  Transmission Date: 20201103
  Serious: Yes (Life-Threatening, Other)
  Sender: FDA-Public Use
  Company Number: FR-AUROBINDO-AUR-APL-2020-046039

PATIENT
  Age: 59 Year
  Sex: Male

DRUGS (11)
  1. METFORMIN [Suspect]
     Active Substance: METFORMIN HYDROCHLORIDE
     Indication: TYPE 2 DIABETES MELLITUS
     Dosage: 1000 MILLIGRAM, ONCE A DAY
     Route: 065
     Dates: start: 20181019, end: 20200802
  2. KETOPROFENE [Concomitant]
     Active Substance: KETOPROFEN
     Indication: NECK PAIN
     Dosage: UNK
     Route: 065
     Dates: start: 20200802
  3. TRIATEC [Concomitant]
     Indication: HYPERTENSION
     Dosage: 1.25 MILLIGRAM, TWO TIMES A DAY
     Route: 065
  4. LAMALINE [Concomitant]
     Indication: NEURALGIA
     Dosage: UNK UNK, TWO TIMES A DAY
     Route: 065
  5. NOVOMIX [Concomitant]
     Active Substance: INSULIN ASPART
     Indication: TYPE 2 DIABETES MELLITUS
     Dosage: 32 INTERNATIONAL UNIT, ONCE A DAY
     Route: 065
  6. AERIUS [Concomitant]
     Indication: HYPERSENSITIVITY
     Dosage: 5 MILLIGRAM, ONCE A DAY
     Route: 065
  7. PARACETAMOL [Concomitant]
     Active Substance: ACETAMINOPHEN
     Indication: PRODUCT USED FOR UNKNOWN INDICATION
     Dosage: UNK
     Route: 065
  8. METFORMIN [Suspect]
     Active Substance: METFORMIN HYDROCHLORIDE
     Dosage: 2000 MILLIGRAM
     Route: 065
     Dates: start: 20200801, end: 20200801
  9. EUCREAS [Suspect]
     Active Substance: METFORMIN HYDROCHLORIDE\VILDAGLIPTIN
     Indication: TYPE 2 DIABETES MELLITUS
     Dosage: 1 DOSAGE FORM, TWO TIMES A DAY (50MG VILDAGLIPTINE PLUS 1000MG METFORMIN)
     Route: 065
     Dates: end: 20200802
  10. ISOPTINE [Concomitant]
     Active Substance: VERAPAMIL HYDROCHLORIDE
     Indication: HYPERTENSION
     Dosage: 120 MILLIGRAM, ONCE A DAY
     Route: 065
  11. ATORVASTATINE [Concomitant]
     Active Substance: ATORVASTATIN
     Indication: DYSLIPIDAEMIA
     Dosage: 40 MILLIGRAM, ONCE A DAY
     Route: 065

REACTIONS (8)
  - Metabolic acidosis [Recovered/Resolved]
  - Cardiogenic shock [Recovered/Resolved]
  - Toxicity to various agents [Unknown]
  - Lactic acidosis [Recovered/Resolved]
  - Priapism [Unknown]
  - Decreased appetite [Recovered/Resolved]
  - Dehydration [Unknown]
  - Acute myocardial infarction [Recovered/Resolved]

NARRATIVE: CASE EVENT DATE: 20200728
